FAERS Safety Report 24790892 (Version 1)
Quarter: 2024Q4

REPORT INFORMATION
  Report Type: Report from Study
  Country: NL (occurrence: NL)
  Receive Date: 20241230
  Receipt Date: 20241230
  Transmission Date: 20250114
  Serious: Yes (Other)
  Sender: VERITY PHARMACEUTICALS INC.
  Company Number: NL-VER-202200150

PATIENT
  Sex: Male

DRUGS (1)
  1. TRIPTORELIN PAMOATE [Suspect]
     Active Substance: TRIPTORELIN PAMOATE
     Indication: Prostate cancer
     Dosage: 1.00 X PER 3 MAANDEN (11.25 MG, 3 M), (STRENGTH: 11.25MG SOLV 2ML (1ST), POWDER FOR PROLONGED-RELEAS
     Route: 030

REACTIONS (1)
  - Therapeutic product effect decreased [Not Recovered/Not Resolved]
